FAERS Safety Report 26061627 (Version 1)
Quarter: 2025Q4

REPORT INFORMATION
  Report Type: Spontaneous
  Country: CN (occurrence: CN)
  Receive Date: 20251118
  Receipt Date: 20251118
  Transmission Date: 20260118
  Serious: Yes (Hospitalization)
  Sender: BEIGENE
  Company Number: CN-BEIGENE-BGN-2025-019716

PATIENT
  Age: 40 Year
  Weight: 60 kg

DRUGS (5)
  1. TISLELIZUMAB [Suspect]
     Active Substance: TISLELIZUMAB
     Indication: Immunomodulatory therapy
     Dosage: 200 MILLIGRAM PER DAY
  2. RIVOCERANIB MESYLATE [Suspect]
     Active Substance: RIVOCERANIB MESYLATE
     Indication: Targeted cancer therapy
     Dosage: 0.25 GRAM, QD
  3. IRINOTECAN HYDROCHLORIDE [Suspect]
     Active Substance: IRINOTECAN HYDROCHLORIDE
     Indication: Chemotherapy
     Dosage: 240 MILLIGRAM PER DAY
  4. SODIUM CHLORIDE [Concomitant]
     Active Substance: SODIUM CHLORIDE
     Indication: Vehicle solution use
     Dosage: 100 MILLILITER
  5. SODIUM CHLORIDE [Concomitant]
     Active Substance: SODIUM CHLORIDE
     Dosage: 250 MILLILITER

REACTIONS (1)
  - Myelosuppression [Recovering/Resolving]
